FAERS Safety Report 8591856-X (Version None)
Quarter: 2012Q3

REPORT INFORMATION
  Report Type: 
  Country: None (occurrence: None)
  Receive Date: 20120803
  Receipt Date: 20120803
  Transmission Date: 20120928
  Serious: Yes (Other)
  Sender: FDA-Public Use
  Company Number: None

PATIENT
  Sex: Female

DRUGS (2)
  1. PERVASTATIN [Concomitant]
  2. FORTEO [Suspect]
     Indication: OSTEOPOROSIS
     Dosage: DAILY IM
     Route: 030
     Dates: start: 20110903, end: 20120703

REACTIONS (1)
  - BLOOD ALKALINE PHOSPHATASE INCREASED [None]
